FAERS Safety Report 21092172 (Version 1)
Quarter: 2022Q3

REPORT INFORMATION
  Report Type: Spontaneous
  Country: FR (occurrence: FR)
  Receive Date: 20220718
  Receipt Date: 20220718
  Transmission Date: 20221027
  Serious: Yes (Hospitalization, Other)
  Sender: FDA-Public Use
  Company Number: FR-AFSSAPS-AN20221586

PATIENT
  Age: 57 Year
  Sex: Male

DRUGS (3)
  1. INDAPAMIDE [Suspect]
     Active Substance: INDAPAMIDE
     Indication: Hypertension
     Dosage: 2.5 MILLIGRAM, ONCE A DAY
     Route: 048
  2. PERINDOPRIL [Suspect]
     Active Substance: PERINDOPRIL
     Indication: Hypertension
     Dosage: 8 MILLIGRAM, ONCE A DAY
     Route: 048
  3. IOMERON [Suspect]
     Active Substance: IOMEPROL
     Indication: Computerised tomogram
     Dosage: 240 MILLILITER 1 TOTAL
     Route: 042
     Dates: start: 20211025, end: 20211102

REACTIONS (1)
  - Acute kidney injury [Recovered/Resolved]

NARRATIVE: CASE EVENT DATE: 20211031
